FAERS Safety Report 24387751 (Version 1)
Quarter: 2024Q4

REPORT INFORMATION
  Report Type: Spontaneous
  Country: US (occurrence: None)
  Receive Date: 20241001
  Receipt Date: 20241001
  Transmission Date: 20250115
  Serious: Yes (Death)
  Sender: Public
  Company Number: None

PATIENT
  Age: 59 Year
  Sex: Male
  Weight: 94 kg

DRUGS (1)
  1. WARFARIN SODIUM [Suspect]
     Active Substance: WARFARIN SODIUM
     Indication: Deep vein thrombosis
     Dosage: 1.00 MG DAILY ORAL ?
     Route: 048
     Dates: end: 20230430

REACTIONS (4)
  - Fall [None]
  - Head injury [None]
  - Cerebral haemorrhage [None]
  - Pneumonia [None]

NARRATIVE: CASE EVENT DATE: 20060101
